FAERS Safety Report 8618674-8 (Version None)
Quarter: 2012Q3

REPORT INFORMATION
  Report Type: 
  Country: None (occurrence: None)
  Receive Date: 20120824
  Receipt Date: 20120815
  Transmission Date: 20120928
  Serious: Yes (Other)
  Sender: FDA-Public Use
  Company Number: US-GENZYME-POMP-1002361

PATIENT
  Sex: Male

DRUGS (5)
  1. DIPHENHYDRAMINE HYDROCHLORIDE [Concomitant]
     Indication: PREMEDICATION
     Dosage: 12.5 MG, UNK
     Route: 050
  2. DIPHENHYDRAMINE HYDROCHLORIDE [Concomitant]
     Dosage: 10 MG, ONCE
     Route: 042
     Dates: start: 20120727, end: 20120727
  3. MYOZYME [Suspect]
     Indication: GLYCOGEN STORAGE DISEASE TYPE II
     Dosage: 204 MG, UNK
     Route: 042
  4. METHYLPREDNISOLONE [Concomitant]
     Indication: PREMEDICATION
     Dosage: 17 MG, UNK
     Route: 042
  5. ACETAMINOPHEN [Concomitant]
     Indication: PREMEDICATION
     Dosage: 100 MG, UNK
     Route: 048

REACTIONS (4)
  - TACHYCARDIA [None]
  - ANGIOEDEMA [None]
  - URTICARIA [None]
  - PYREXIA [None]
